FAERS Safety Report 25742122 (Version 1)
Quarter: 2025Q3

REPORT INFORMATION
  Report Type: Spontaneous
  Country: US (occurrence: US)
  Receive Date: 20250829
  Receipt Date: 20250829
  Transmission Date: 20251021
  Serious: No
  Sender: SCIEGEN PHARMACEUTICALS INC
  Company Number: US-SCIEGENP-2025SCSPO00207

PATIENT
  Sex: Female

DRUGS (1)
  1. BUPROPION HYDROCHLORIDE [Suspect]
     Active Substance: BUPROPION HYDROCHLORIDE
     Indication: Product used for unknown indication
     Route: 065

REACTIONS (7)
  - Fatigue [Unknown]
  - Headache [Unknown]
  - Disturbance in attention [Unknown]
  - Somnolence [Unknown]
  - Anxiety [Unknown]
  - Product substitution issue [Unknown]
  - Product quality issue [Unknown]
